FAERS Safety Report 8278069-6 (Version None)
Quarter: 2012Q2

REPORT INFORMATION
  Report Type: 
  Country: None (occurrence: None)
  Receive Date: 20120412
  Receipt Date: 20120328
  Transmission Date: 20120825
  Serious: No
  Sender: FDA-Public Use
  Company Number: US-ENDO PHARMACEUTICALS INC.-PERC20120060

PATIENT
  Sex: Female

DRUGS (6)
  1. PERCOCET [Suspect]
     Indication: BREAKTHROUGH PAIN
     Dosage: 30/975 MG
     Route: 048
     Dates: start: 20100101
  2. HYDROCODONE/ACETAMINOPHEN 10MG/500MG [Concomitant]
     Indication: INTERVERTEBRAL DISC PROTRUSION
     Dosage: 40/2000 MG
     Route: 048
     Dates: start: 20120326
  3. OPANA ER [Suspect]
     Indication: INTERVERTEBRAL DISC PROTRUSION
     Route: 048
     Dates: start: 20100601, end: 20120326
  4. HYDROCODONE/ACETAMINOPHEN 10MG/500MG [Concomitant]
     Indication: BACK PAIN
  5. PERCOCET [Suspect]
     Indication: INTERVERTEBRAL DISC PROTRUSION
  6. OPANA ER [Suspect]
     Indication: BACK PAIN

REACTIONS (2)
  - DRUG INEFFECTIVE [None]
  - WITHDRAWAL SYNDROME [None]
